FAERS Safety Report 5626661-7 (Version None)
Quarter: 2008Q1

REPORT INFORMATION
  Report Type: 
  Country: None (occurrence: None)
  Receive Date: 20080214
  Receipt Date: 20080207
  Transmission Date: 20080703
  Serious: Yes (Hospitalization)
  Sender: FDA-Public Use
  Company Number: US-BOEHRINGER INGELHEIM GMBH, GERMANY-2008-BP-00898BP

PATIENT
  Sex: Female

DRUGS (13)
  1. SPIRIVA [Suspect]
     Indication: EMPHYSEMA
     Route: 055
     Dates: start: 20060101
  2. LISINOPRIL [Concomitant]
  3. SERTRALINE [Concomitant]
  4. LIPITOR [Concomitant]
  5. TIMOPTIC [Concomitant]
  6. SIMVASTATIN [Concomitant]
  7. AMLODIPINE-BESYLA [Concomitant]
  8. OXYCODONE HCL [Concomitant]
  9. LEVOTHYROXINE SODIUM [Concomitant]
  10. KEFLEX [Concomitant]
     Indication: URINARY TRACT INFECTION
     Dates: start: 20080127
  11. THEO-24 [Concomitant]
  12. EPIDURAL [Concomitant]
     Indication: BACK PAIN
     Route: 008
  13. ACETAMINOPHEN AND OXYCODONE HCL [Concomitant]

REACTIONS (1)
  - DYSPNOEA [None]
